FAERS Safety Report 6271751-1 (Version None)
Quarter: 2009Q3

REPORT INFORMATION
  Report Type: 
  Country: None (occurrence: None)
  Receive Date: 20090717
  Receipt Date: 20090707
  Transmission Date: 20100115
  Serious: Yes (Other)
  Sender: FDA-Public Use
  Company Number: FR-BAYER-200922984GPV

PATIENT
  Age: 47 Year
  Sex: Female
  Weight: 53 kg

DRUGS (1)
  1. MIRENA [Suspect]
     Indication: DRUG USE FOR UNKNOWN INDICATION
     Route: 015
     Dates: start: 20060318

REACTIONS (1)
  - MENINGIOMA [None]
